FAERS Safety Report 7219368-6 (Version None)
Quarter: 2011Q1

REPORT INFORMATION
  Report Type: 
  Country: None (occurrence: None)
  Receive Date: 20110111
  Receipt Date: 20110106
  Transmission Date: 20110831
  Serious: No
  Sender: FDA-Public Use
  Company Number: US-PFIZER INC-2010180821

PATIENT
  Sex: Female
  Weight: 106.5 kg

DRUGS (2)
  1. WARFARIN [Concomitant]
     Indication: ANTICOAGULANT THERAPY
     Dosage: UNK
     Dates: start: 20090101
  2. TIKOSYN [Suspect]
     Indication: ATRIAL FIBRILLATION
     Dosage: 0.375 MG, 2X/DAY
     Route: 048
     Dates: start: 20101117, end: 20101227

REACTIONS (11)
  - DEPRESSION [None]
  - DEHYDRATION [None]
  - DYSPNOEA [None]
  - HYPERHIDROSIS [None]
  - HEART RATE INCREASED [None]
  - HYPERCHLORHYDRIA [None]
  - FEELING ABNORMAL [None]
  - THIRST [None]
  - DRUG INEFFECTIVE [None]
  - FEAR [None]
  - EATING DISORDER [None]
